FAERS Safety Report 9034598 (Version 1)
Quarter: 2013Q1

REPORT INFORMATION
  Report Type: Spontaneous
  Country: US (occurrence: None)
  Receive Date: 20130116
  Receipt Date: 20130116
  Transmission Date: 20140127
  Serious: No
  Sender: FDA-Public Use
  Company Number: None

PATIENT
  Age: 69 Year
  Sex: Male

DRUGS (2)
  1. BACTRIM DS [Suspect]
     Dates: start: 20110407, end: 20110412
  2. CLINDAMYCIN [Suspect]
     Dates: start: 20110412, end: 20110426

REACTIONS (10)
  - Drug-induced liver injury [None]
  - Blood alkaline phosphatase increased [None]
  - Blood bilirubin increased [None]
  - Sepsis [None]
  - Pneumonia [None]
  - Respiratory failure [None]
  - Haematoma [None]
  - Procedural site reaction [None]
  - Cholestasis [None]
  - Hepatic infarction [None]
